FAERS Safety Report 14467517 (Version 1)
Quarter: 2018Q1

REPORT INFORMATION
  Report Type: Spontaneous
  Country: US (occurrence: US)
  Receive Date: 20180131
  Receipt Date: 20180131
  Transmission Date: 20180509
  Serious: No
  Sender: FDA-Public Use
  Company Number: US-ALLERGAN-1756401US

PATIENT
  Age: 56 Year
  Sex: Female
  Weight: 72.57 kg

DRUGS (2)
  1. SAVELLA [Suspect]
     Active Substance: MILNACIPRAN HYDROCHLORIDE
     Indication: PRODUCT USED FOR UNKNOWN INDICATION
     Dosage: UNK, UNKNOWN
     Route: 065
  2. LYRICA [Concomitant]
     Active Substance: PREGABALIN
     Indication: FIBROMYALGIA
     Dosage: UNK, UNKNOWN
     Route: 065

REACTIONS (9)
  - Small fibre neuropathy [Unknown]
  - Burning sensation [Unknown]
  - Fibromyalgia [Unknown]
  - Sensory loss [Unknown]
  - Allodynia [Unknown]
  - Pain [Unknown]
  - Visual impairment [Unknown]
  - Paraesthesia [Unknown]
  - Memory impairment [Unknown]
